FAERS Safety Report 9717760 (Version 3)
Quarter: 2014Q2

REPORT INFORMATION
  Report Type: Spontaneous
  Country: BR (occurrence: BR)
  Receive Date: 20131127
  Receipt Date: 20140520
  Transmission Date: 20141212
  Serious: Yes (Hospitalization)
  Sender: FDA-Public Use
  Company Number: BR-GLAXOSMITHKLINE-A1051472A

PATIENT
  Age: 4 Year
  Sex: Male
  Weight: 16 kg

DRUGS (6)
  1. AVAMYS [Suspect]
     Indication: PRODUCT USED FOR UNKNOWN INDICATION
     Dosage: 27.5MCG SEE DOSAGE TEXT
     Route: 045
     Dates: start: 2012
  2. AEROLIN [Suspect]
     Indication: PRODUCT USED FOR UNKNOWN INDICATION
     Dosage: 2PUFF PER DAY
     Route: 055
     Dates: start: 201305
  3. ZINNAT [Suspect]
     Indication: PNEUMONIA
     Dosage: 250MG TWICE PER DAY
     Route: 048
     Dates: start: 20131011, end: 20131015
  4. FLIXOTIDE [Concomitant]
     Indication: PRODUCT USED FOR UNKNOWN INDICATION
     Dosage: 1PUFF TWICE PER DAY
     Route: 055
     Dates: start: 201311
  5. SODIUM CHLORIDE [Concomitant]
     Indication: PRODUCT USED FOR UNKNOWN INDICATION
     Dosage: 1PUFF VARIABLE DOSE
     Route: 045
     Dates: start: 2012
  6. BROMOPRIDE [Concomitant]
     Indication: PRODUCT USED FOR UNKNOWN INDICATION
     Dosage: 16DROP THREE TIMES PER DAY
     Route: 048
     Dates: start: 2011

REACTIONS (4)
  - Pneumonia [Recovered/Resolved]
  - Drug ineffective [Recovered/Resolved]
  - Drug administration error [Recovered/Resolved]
  - Product quality issue [Unknown]
